FAERS Safety Report 10294585 (Version 2)
Quarter: 2014Q3

REPORT INFORMATION
  Report Type: Spontaneous
  Country: US (occurrence: US)
  Receive Date: 20140710
  Receipt Date: 20140829
  Transmission Date: 20150326
  Serious: Yes (Other)
  Sender: FDA-Public Use
  Company Number: US-BAYER-2014-101813

PATIENT
  Age: 68 Year
  Sex: Male
  Weight: 90.7 kg

DRUGS (6)
  1. D-MANNOSE [Concomitant]
  2. ALEVE [Suspect]
     Active Substance: NAPROXEN SODIUM
     Indication: ARTHRITIS
     Dosage: 1-2 DF
     Route: 048
     Dates: start: 201406, end: 20140702
  3. ATORVASTATIN CALCIUM. [Concomitant]
     Active Substance: ATORVASTATIN CALCIUM
  4. CRANBERRY. [Concomitant]
     Active Substance: CRANBERRY
  5. BAYER GENUINE ASPIRIN [Suspect]
     Active Substance: ASPIRIN
  6. SAW PALMETTO [Concomitant]
     Active Substance: SAW PALMETTO

REACTIONS (3)
  - Kidney infection [Recovered/Resolved]
  - Urinary tract infection [Recovered/Resolved]
  - Blood urine present [Recovered/Resolved]
